FAERS Safety Report 7307178-0 (Version None)
Quarter: 2011Q1

REPORT INFORMATION
  Report Type: 
  Country: None (occurrence: None)
  Receive Date: 20110120
  Receipt Date: 20101021
  Transmission Date: 20110831
  Serious: Yes (Other)
  Sender: FDA-Public Use
  Company Number: 2010SP056461

PATIENT
  Age: 17 Year
  Sex: Male

DRUGS (3)
  1. THEOPHYLLINE [Concomitant]
  2. DULERA TABLET [Suspect]
     Indication: ASTHMA
     Dosage: PO
     Route: 048
     Dates: start: 20100101
  3. BUDESONIDE [Concomitant]

REACTIONS (2)
  - ADRENAL SUPPRESSION [None]
  - FATIGUE [None]
